FAERS Safety Report 7917798-8 (Version None)
Quarter: 2011Q4

REPORT INFORMATION
  Report Type: 
  Country: None (occurrence: None)
  Receive Date: 20111114
  Receipt Date: 20111102
  Transmission Date: 20120403
  Serious: Yes (Other)
  Sender: FDA-Public Use
  Company Number: 1000020555

PATIENT
  Age: 29 Year
  Sex: Female

DRUGS (2)
  1. LEXAPRO [Suspect]
     Indication: POSTPARTUM DEPRESSION
     Dosage: 10 MG (10 MG, 1 IN 1 D), ORAL
     Route: 048
     Dates: start: 20100201, end: 20100101
  2. LEXAPRO [Suspect]
     Indication: POSTPARTUM DEPRESSION
     Dosage: 20 MG (20 MG, 1 IN 1 D), ORAL
     Route: 048
     Dates: start: 20100101, end: 20110401

REACTIONS (4)
  - HAEMORRHOIDS [None]
  - COLITIS ULCERATIVE [None]
  - GASTRIC DILATATION [None]
  - OFF LABEL USE [None]
